FAERS Safety Report 6143527-7 (Version None)
Quarter: 2009Q2

REPORT INFORMATION
  Report Type: 
  Country: None (occurrence: None)
  Receive Date: 20090403
  Receipt Date: 20090402
  Transmission Date: 20091009
  Serious: Yes (Other)
  Sender: FDA-Public Use
  Company Number: US-BRISTOL-MYERS SQUIBB COMPANY-14572077

PATIENT
  Age: 19 Year
  Sex: Male

DRUGS (4)
  1. ABILIFY [Suspect]
     Indication: IRRITABILITY
     Dosage: 5MG ON 3/27/09;INCREASE TO 10MG ON 3/31/09;AGAIN DECREASED DOSE TO 5MG
     Dates: start: 20090327
  2. ABILIFY [Suspect]
     Indication: AGITATION
     Dosage: 5MG ON 3/27/09;INCREASE TO 10MG ON 3/31/09;AGAIN DECREASED DOSE TO 5MG
     Dates: start: 20090327
  3. ZOLOFT [Suspect]
     Indication: IRRITABILITY
  4. ZOLOFT [Suspect]
     Indication: AGITATION

REACTIONS (2)
  - BUNDLE BRANCH BLOCK RIGHT [None]
  - PAIN IN EXTREMITY [None]
